FAERS Safety Report 7995956-4 (Version None)
Quarter: 2011Q4

REPORT INFORMATION
  Report Type: 
  Country: None (occurrence: None)
  Receive Date: 20111220
  Receipt Date: 20111205
  Transmission Date: 20120403
  Serious: Yes (Life-Threatening, Hospitalization)
  Sender: FDA-Public Use
  Company Number: IT-ROCHE-1010568

PATIENT
  Sex: Female
  Weight: 62.5 kg

DRUGS (8)
  1. VYTORIN [Concomitant]
     Dates: end: 20111028
  2. DICLOFENAC [Concomitant]
     Dates: start: 20101122, end: 20111028
  3. NEXIUM [Concomitant]
     Dates: end: 20111028
  4. LEDERFOLIN [Concomitant]
     Dates: end: 20111028
  5. ASPIRIN [Concomitant]
  6. METHOTREXATE [Suspect]
     Indication: RHEUMATOID ARTHRITIS
     Dosage: DATE OF LAST DOSE PRIOR TO SAE: 18 OCTOBER 2011
     Route: 048
     Dates: start: 20091019
  7. PAROXETINE HYDROCHLORIDE [Concomitant]
     Dates: end: 20111028
  8. ACTEMRA [Suspect]
     Indication: RHEUMATOID ARTHRITIS
     Dosage: DATE OF LAST DOSE PRIOR TO SAE: 26 SEPTEMBER 2011
     Route: 042
     Dates: start: 20091019

REACTIONS (2)
  - BRONCHOPNEUMONIA [None]
  - ACUTE RESPIRATORY DISTRESS SYNDROME [None]
